FAERS Safety Report 6876507-4 (Version None)
Quarter: 2010Q3

REPORT INFORMATION
  Report Type: 
  Country: None (occurrence: None)
  Receive Date: 20100727
  Receipt Date: 20100713
  Transmission Date: 20110219
  Serious: Yes (Hospitalization)
  Sender: FDA-Public Use
  Company Number: FR-CELGENEUS-056-21880-10071194

PATIENT
  Sex: Male

DRUGS (3)
  1. REVLIMID [Suspect]
     Route: 048
     Dates: start: 20100525
  2. REVLIMID [Suspect]
     Route: 048
  3. DEXAMETHASONE [Concomitant]
     Route: 065

REACTIONS (4)
  - DYSARTHRIA [None]
  - INFLAMMATION [None]
  - RENAL FAILURE [None]
  - TOXIC SKIN ERUPTION [None]
